FAERS Safety Report 9063548 (Version 1)
Quarter: 2013Q1

REPORT INFORMATION
  Report Type: Spontaneous
  Country: US (occurrence: US)
  Receive Date: 20130213
  Receipt Date: 20130213
  Transmission Date: 20140127
  Serious: No
  Sender: FDA-Public Use
  Company Number: US-009507513-1302USA004599

PATIENT
  Sex: Female
  Weight: 114 kg

DRUGS (3)
  1. FOSAMAX [Suspect]
     Indication: OSTEOPOROSIS
  2. CALTRATE WITH VITAMIN D [Suspect]
     Indication: OSTEOPOROSIS
     Dosage: 1 DF, BID
     Route: 048
     Dates: start: 1990
  3. ACIDOPHILUS [Concomitant]
     Dosage: 2 DF, QD
     Route: 048

REACTIONS (2)
  - Cardiomyopathy [Recovering/Resolving]
  - Drug intolerance [Unknown]
